FAERS Safety Report 13943447 (Version 1)
Quarter: 2017Q3

REPORT INFORMATION
  Report Type: Spontaneous
  Country: JP (occurrence: JP)
  Receive Date: 20170907
  Receipt Date: 20170907
  Transmission Date: 20171128
  Serious: Yes (Other)
  Sender: FDA-Public Use
  Company Number: JP-ASTRAZENECA-2017SE72095

PATIENT
  Sex: Female

DRUGS (1)
  1. IRESSA [Suspect]
     Active Substance: GEFITINIB
     Indication: LUNG NEOPLASM MALIGNANT
     Route: 048

REACTIONS (8)
  - Constipation [Unknown]
  - Drug resistance [Unknown]
  - Cutaneous symptom [Recovered/Resolved]
  - Metastases to neck [Unknown]
  - Nail disorder [Not Recovered/Not Resolved]
  - Adverse drug reaction [Unknown]
  - Eczema [Unknown]
  - Peripheral swelling [Unknown]
